FAERS Safety Report 21404700 (Version 2)
Quarter: 2022Q4

REPORT INFORMATION
  Report Type: Spontaneous
  Country: PL (occurrence: PL)
  Receive Date: 20221003
  Receipt Date: 20221012
  Transmission Date: 20230112
  Serious: Yes (Death, Hospitalization, Other)
  Sender: FDA-Public Use
  Company Number: PL-GILEAD-2022-0600025

PATIENT
  Age: 34 Year
  Sex: Male

DRUGS (1)
  1. BIKTARVY [Suspect]
     Active Substance: BICTEGRAVIR SODIUM\EMTRICITABINE\TENOFOVIR ALAFENAMIDE FUMARATE
     Indication: Product used for unknown indication
     Dosage: UNK
     Route: 065
     Dates: start: 20220712

REACTIONS (17)
  - General physical health deterioration [Fatal]
  - Oxygen saturation decreased [Fatal]
  - Tachypnoea [Fatal]
  - Tachycardia [Fatal]
  - Body temperature abnormal [Fatal]
  - Escherichia infection [Fatal]
  - Pneumothorax [Fatal]
  - Respiratory failure [Fatal]
  - Circulatory collapse [Fatal]
  - Anaemia [Fatal]
  - Thrombocytopenia [Fatal]
  - Multiple organ dysfunction syndrome [Fatal]
  - Inappropriate antidiuretic hormone secretion [Unknown]
  - Pyrexia [Unknown]
  - Cough [Unknown]
  - Tachypnoea [Unknown]
  - Oxygen saturation decreased [Unknown]

NARRATIVE: CASE EVENT DATE: 20220725
